FAERS Safety Report 9266771 (Version 1)
Quarter: 2013Q2

REPORT INFORMATION
  Report Type: Spontaneous
  Country: US (occurrence: US)
  Receive Date: 20130502
  Receipt Date: 20130502
  Transmission Date: 20140414
  Serious: Yes (Hospitalization)
  Sender: FDA-Public Use
  Company Number: US-PFIZER INC-2013132252

PATIENT
  Age: 58 Year
  Sex: Female
  Weight: 86.17 kg

DRUGS (2)
  1. SUTENT [Suspect]
     Indication: BONE NEOPLASM
     Dosage: 50 MG, CYCLIC
     Dates: start: 201301
  2. FENTANYL [Concomitant]
     Indication: PAIN
     Dosage: 100 MG, EVERY 72 HOURS

REACTIONS (15)
  - Off label use [Unknown]
  - Blood potassium decreased [Recovered/Resolved]
  - Blood magnesium decreased [Recovered/Resolved]
  - Vitamin B12 decreased [Recovered/Resolved]
  - Oxygen saturation decreased [Recovered/Resolved]
  - Oedema peripheral [Unknown]
  - Feeling abnormal [Unknown]
  - Malaise [Unknown]
  - Burning sensation [Unknown]
  - Erythema [Unknown]
  - Activities of daily living impaired [Unknown]
  - Limb discomfort [Unknown]
  - Swelling face [Unknown]
  - Erythema [Unknown]
  - Fluid retention [Unknown]
